FAERS Safety Report 8953353 (Version 1)
Quarter: 2012Q4

REPORT INFORMATION
  Report Type: 
  Country: FR (occurrence: FR)
  Receive Date: 20121206
  Receipt Date: 20121206
  Transmission Date: 20130627
  Serious: Yes (Hospitalization)
  Sender: FDA-Public Use
  Company Number: FR-BRISTOL-MYERS SQUIBB COMPANY-17164278

PATIENT
  Age: 91 Year
  Sex: Male

DRUGS (2)
  1. COUMADIN TABS [Suspect]
     Indication: ATRIAL FIBRILLATION
     Dosage: Interrupted on 01-Sep-2012
restarted at dose of 1/2 tab per day
     Route: 048
  2. KARDEGIC [Suspect]
     Dosage: Kardegic 75 mg powder in sachet
     Route: 048
     Dates: end: 20120901

REACTIONS (3)
  - Haemarthrosis [Recovered/Resolved]
  - International normalised ratio increased [Recovered/Resolved]
  - Chondrocalcinosis [Recovered/Resolved]
